APPROVED DRUG PRODUCT: AMLEXANOX
Active Ingredient: AMLEXANOX
Strength: 2MG
Dosage Form/Route: PATCH;TOPICAL
Application: N021727 | Product #001
Applicant: ULURU INC
Approved: Sep 29, 2004 | RLD: No | RS: No | Type: DISCN